FAERS Safety Report 5729532-0 (Version None)
Quarter: 2008Q2

REPORT INFORMATION
  Report Type: 
  Country: None (occurrence: None)
  Receive Date: 20080501
  Receipt Date: 20080418
  Transmission Date: 20081010
  Serious: Yes (Hospitalization)
  Sender: FDA-Public Use
  Company Number: 2008000476

PATIENT
  Age: 75 Year
  Sex: Male

DRUGS (8)
  1. ERLOTINIB (ERLOTINIB HCL) (TABLET) (ERLOTINIB HCL) [Suspect]
     Indication: HEPATOBLASTOMA
     Dosage: 150 MG, QD, ORAL
     Route: 048
     Dates: start: 20071101
  2. BEVACIZUMAB (INJECTION FOR INFUSION) [Suspect]
     Dosage: 10 MG/KG, Q2W, INTRAVENOUS
     Route: 042
     Dates: start: 20071101
  3. LOVENOX [Concomitant]
  4. DEXAMETHASONE TAB [Concomitant]
  5. GLIPIZIDE [Concomitant]
  6. SIMVASTATIN [Concomitant]
  7. NADOLOL [Concomitant]
  8. OXYBUTYNIN CHLORIDE [Concomitant]

REACTIONS (9)
  - ACTIVATED PARTIAL THROMBOPLASTIN TIME PROLONGED [None]
  - ANAEMIA [None]
  - BLOOD BLISTER [None]
  - BRAIN NATRIURETIC PEPTIDE INCREASED [None]
  - CONTUSION [None]
  - HAEMATOMA [None]
  - HAEMORRHAGE [None]
  - MUSCLE MASS [None]
  - THROMBOCYTOPENIA [None]
